FAERS Safety Report 7969811-X (Version None)
Quarter: 2011Q4

REPORT INFORMATION
  Report Type: 
  Country: None (occurrence: None)
  Receive Date: 20111212
  Receipt Date: 20111130
  Transmission Date: 20120403
  Serious: Yes (Hospitalization)
  Sender: FDA-Public Use
  Company Number: US-BAYER-200930655NA

PATIENT
  Age: 26 Year
  Sex: Female
  Weight: 52.273 kg

DRUGS (6)
  1. YASMIN [Suspect]
     Dosage: UNK
     Route: 048
     Dates: start: 20080601
  2. AZITHROMYCIN [Concomitant]
  3. PROTONIX [Concomitant]
     Indication: CHEST PAIN
  4. TRAMADOL HCL [Concomitant]
  5. AMITRIPTYLINE HCL [Concomitant]
     Indication: PRODUCT USED FOR UNKNOWN INDICATION
  6. YAZ [Suspect]
     Dosage: UNK UNK, QD
     Route: 048
     Dates: start: 20080630, end: 20080728

REACTIONS (5)
  - FATIGUE [None]
  - PULMONARY EMBOLISM [None]
  - FEELING COLD [None]
  - DYSPNOEA [None]
  - CHEST PAIN [None]
